FAERS Safety Report 6173446-1 (Version None)
Quarter: 2009Q2

REPORT INFORMATION
  Report Type: 
  Country: None (occurrence: None)
  Receive Date: 20090430
  Receipt Date: 20090421
  Transmission Date: 20091009
  Serious: Yes (Other)
  Sender: FDA-Public Use
  Company Number: SE-WATSON-2009-02893

PATIENT
  Age: 20 Year
  Sex: Female

DRUGS (1)
  1. TETRACYCLINE HYDROCHLORIDE (WATSON LABORATORIES) [Suspect]
     Indication: PNEUMONIA
     Dosage: UNK
     Route: 048

REACTIONS (1)
  - HEPATOCELLULAR INJURY [None]
